FAERS Safety Report 16980068 (Version 1)
Quarter: 2019Q4

REPORT INFORMATION
  Report Type: Spontaneous
  Country: FR (occurrence: FR)
  Receive Date: 20191031
  Receipt Date: 20191031
  Transmission Date: 20200122
  Serious: Yes (Hospitalization)
  Sender: FDA-Public Use
  Company Number: FR-ASTRAZENECA-2019SF52796

PATIENT
  Age: 29 Year
  Sex: Male
  Weight: 75 kg

DRUGS (2)
  1. XEROQUEL [Suspect]
     Active Substance: QUETIAPINE FUMARATE
     Indication: INTENTIONAL OVERDOSE
     Dosage: 12000.0MG ONCE/SINGLE ADMINISTRATION
     Route: 048
     Dates: start: 20191002, end: 20191002
  2. LOXAPAC [Suspect]
     Active Substance: LOXAPINE
     Indication: INTENTIONAL OVERDOSE
     Dosage: 500.0MG ONCE/SINGLE ADMINISTRATION
     Route: 048
     Dates: start: 20191002, end: 20191002

REACTIONS (7)
  - Poisoning deliberate [Recovered/Resolved]
  - Stress polycythaemia [Recovered/Resolved]
  - Hyperreflexia [Recovered/Resolved]
  - Hepatocellular injury [Recovered/Resolved]
  - Electrocardiogram QT prolonged [Recovered/Resolved]
  - Nystagmus [Recovered/Resolved]
  - Hypertension [Recovered/Resolved]

NARRATIVE: CASE EVENT DATE: 20191002
